FAERS Safety Report 18901237 (Version 1)
Quarter: 2021Q1

REPORT INFORMATION
  Report Type: Spontaneous
  Country: IL (occurrence: IL)
  Receive Date: 20210216
  Receipt Date: 20210216
  Transmission Date: 20210420
  Serious: Yes (Hospitalization)
  Sender: FDA-Public Use
  Company Number: IL-BAYER-2021-060152

PATIENT
  Age: 22 Year
  Sex: Female

DRUGS (2)
  1. YAZ PLUS [Suspect]
     Active Substance: DROSPIRENONE\ETHINYL ESTRADIOL
     Dosage: UNK
     Route: 048
     Dates: start: 20200301
  2. ETOPAN [Concomitant]
     Active Substance: ETODOLAC

REACTIONS (10)
  - Abdominal pain [None]
  - Heart rate increased [None]
  - Pyrexia [None]
  - Vomiting [None]
  - Lymphadenopathy [None]
  - Nausea [None]
  - Asthenia [None]
  - Headache [None]
  - Dizziness [None]
  - Arthralgia [None]

NARRATIVE: CASE EVENT DATE: 202102
